FAERS Safety Report 15713886 (Version 1)
Quarter: 2018Q4

REPORT INFORMATION
  Report Type: Spontaneous
  Country: US (occurrence: US)
  Receive Date: 20181212
  Receipt Date: 20181212
  Transmission Date: 20190205
  Serious: Yes (Death)
  Sender: FDA-Public Use
  Company Number: None

PATIENT
  Age: 77 Year
  Sex: Male
  Weight: 83.8 kg

DRUGS (12)
  1. DEXAMETHASONE. [Concomitant]
     Active Substance: DEXAMETHASONE
  2. ENALAPRIL [Concomitant]
     Active Substance: ENALAPRIL
  3. ACYCLOVIR. [Concomitant]
     Active Substance: ACYCLOVIR
  4. ASPIRIN. [Concomitant]
     Active Substance: ASPIRIN
  5. CYANOCOBALAMIN. [Concomitant]
     Active Substance: CYANOCOBALAMIN
  6. METOPROLOL. [Concomitant]
     Active Substance: METOPROLOL
  7. ROSVUASTATIN [Concomitant]
  8. CARFILZOMIB [Suspect]
     Active Substance: CARFILZOMIB
     Indication: PLASMA CELL MYELOMA
     Dates: start: 20181106, end: 20181106
  9. METFORMIN [Concomitant]
     Active Substance: METFORMIN HYDROCHLORIDE
  10. INSULIN GLARGINE [Concomitant]
     Active Substance: INSULIN GLARGINE
  11. FILGRASTIM [Concomitant]
     Active Substance: FILGRASTIM
  12. SULFAMETHOXAZOLE-TRIMETHOPRIM [Concomitant]
     Active Substance: SULFAMETHOXAZOLE\TRIMETHOPRIM

REACTIONS (12)
  - Loss of consciousness [None]
  - Electrocardiogram QT prolonged [None]
  - Unresponsive to stimuli [None]
  - Chills [None]
  - Infusion related reaction [None]
  - Dyspnoea [None]
  - Pyrexia [None]
  - Wheezing [None]
  - Cardiac arrest [None]
  - Malaise [None]
  - Hyperhidrosis [None]
  - Sepsis [None]

NARRATIVE: CASE EVENT DATE: 20181107
